FAERS Safety Report 7807703-7 (Version None)
Quarter: 2011Q4

REPORT INFORMATION
  Report Type: 
  Country: None (occurrence: None)
  Receive Date: 20111011
  Receipt Date: 20111003
  Transmission Date: 20120403
  Serious: Yes (Hospitalization)
  Sender: FDA-Public Use
  Company Number: US-ACTELION-A-US2006-13716

PATIENT

DRUGS (3)
  1. TREPROSTINIL [Concomitant]
  2. TRACLEER [Suspect]
     Indication: PULMONARY HYPERTENSION
     Dosage: UNK
     Route: 048
     Dates: start: 20060717
  3. EPOGEN [Concomitant]

REACTIONS (9)
  - PNEUMONIA [None]
  - PERICARDIAL EFFUSION [None]
  - RED BLOOD CELL COUNT DECREASED [None]
  - ABDOMINAL PAIN [None]
  - ANAEMIA [None]
  - HAEMOGLOBIN DECREASED [None]
  - OEDEMA PERIPHERAL [None]
  - FATIGUE [None]
  - RENAL FAILURE [None]
